FAERS Safety Report 24032529 (Version 1)
Quarter: 2024Q3

REPORT INFORMATION
  Report Type: Spontaneous
  Country: JP (occurrence: JP)
  Receive Date: 20240701
  Receipt Date: 20240701
  Transmission Date: 20241017
  Serious: Yes (Other)
  Sender: CHEPLAPHARM
  Company Number: JP-ELI_LILLY_AND_COMPANY-JP202406009286

PATIENT
  Age: 76 Year
  Sex: Female

DRUGS (2)
  1. OLANZAPINE [Suspect]
     Active Substance: OLANZAPINE
     Indication: Dementia with Lewy bodies
     Route: 048
  2. BLONANSERIN [Suspect]
     Active Substance: BLONANSERIN
     Indication: Chronic obstructive pulmonary disease

REACTIONS (5)
  - Altered state of consciousness [Recovering/Resolving]
  - Respiratory failure [Recovering/Resolving]
  - Sedation complication [Unknown]
  - Aspiration [Unknown]
  - Off label use [Unknown]
